FAERS Safety Report 6042564-0 (Version None)
Quarter: 2009Q1

REPORT INFORMATION
  Report Type: 
  Country: None (occurrence: None)
  Receive Date: 20090119
  Receipt Date: 20090114
  Transmission Date: 20090719
  Serious: Yes (Hospitalization)
  Sender: FDA-Public Use
  Company Number: ES-BAXTER-2009BH000692

PATIENT
  Age: 80 Year
  Sex: Female

DRUGS (3)
  1. ENDOXAN BAXTER [Suspect]
     Indication: BREAST CANCER
     Route: 042
     Dates: start: 20081113, end: 20081113
  2. EPIRUBICIN HYDROCHLORIDE [Interacting]
     Indication: BREAST CANCER
     Route: 042
     Dates: start: 20081113, end: 20081113
  3. FLUOROURACIL [Interacting]
     Indication: BREAST CANCER
     Route: 042
     Dates: start: 20081113, end: 20081113

REACTIONS (3)
  - COUGH [None]
  - PANCYTOPENIA [None]
  - PYREXIA [None]
